FAERS Safety Report 4688569-3 (Version None)
Quarter: 2005Q2

REPORT INFORMATION
  Report Type: 
  Country: None (occurrence: None)
  Receive Date: 20050613
  Receipt Date: 20050520
  Transmission Date: 20051028
  Serious: Yes (Other)
  Sender: FDA-Public Use
  Company Number: CH-ABBOTT-05P-151-0301153-00

PATIENT
  Age: 52 Year
  Sex: Male

DRUGS (7)
  1. CIPRALEX FILM-COATED TABLETS [Suspect]
     Indication: ANXIETY
     Route: 048
     Dates: start: 20050426
  2. CIPRALEX FILM-COATED TABLETS [Suspect]
     Route: 048
     Dates: start: 20040101, end: 20050425
  3. OLANZAPINE [Suspect]
     Indication: PSYCHOTIC DISORDER
     Route: 048
     Dates: start: 20050421
  4. MIDAZOLAM HCL [Suspect]
     Indication: ANXIETY
     Route: 048
     Dates: start: 20050426
  5. MIDAZOLAM HCL [Suspect]
     Route: 048
     Dates: start: 20040101, end: 20050425
  6. PROCYCLIDINE HYDROCHLORIDE 5MG TAB [Suspect]
     Indication: NERVOUS SYSTEM DISORDER
     Route: 048
     Dates: start: 20050426
  7. PROCYCLIDINE HYDROCHLORIDE 5MG TAB [Suspect]
     Route: 048
     Dates: start: 20050101, end: 20050425

REACTIONS (4)
  - DIZZINESS [None]
  - EPILEPSY [None]
  - LOSS OF CONSCIOUSNESS [None]
  - OVERDOSE [None]
